FAERS Safety Report 25189625 (Version 1)
Quarter: 2025Q2

REPORT INFORMATION
  Report Type: Spontaneous
  Country: US (occurrence: None)
  Receive Date: 20250410
  Receipt Date: 20250410
  Transmission Date: 20250717
  Serious: Yes (Hospitalization, Other)
  Sender: FDA-CTU
  Company Number: None

PATIENT
  Age: 77 Year
  Sex: Female

DRUGS (1)
  1. XCOPRI [Suspect]
     Active Substance: CENOBAMATE
     Indication: Epilepsy
     Dosage: 350 MG AT BEDTIME ORAL
     Route: 048
     Dates: start: 20230505, end: 20250410

REACTIONS (2)
  - Cardiac disorder [None]
  - Blood potassium increased [None]

NARRATIVE: CASE EVENT DATE: 20250316
